FAERS Safety Report 21091202 (Version 1)
Quarter: 2022Q3

REPORT INFORMATION
  Report Type: Spontaneous
  Country: US (occurrence: US)
  Receive Date: 20220716
  Receipt Date: 20220716
  Transmission Date: 20221027
  Serious: No
  Sender: FDA-Public Use
  Company Number: US-SA-SAC20220713001846

PATIENT
  Sex: Male
  Weight: 58 kg

DRUGS (4)
  1. DUPIXENT [Suspect]
     Active Substance: DUPILUMAB
     Indication: Dermatitis atopic
     Dosage: 600MG; 1X
     Route: 058
     Dates: start: 20220621
  2. DUPIXENT [Suspect]
     Active Substance: DUPILUMAB
     Dosage: 300MG; QOW
     Route: 058
  3. WINLEVI [Concomitant]
     Active Substance: CLASCOTERONE
  4. CLOBETASOL PROPIONATE [Concomitant]
     Active Substance: CLOBETASOL PROPIONATE

REACTIONS (3)
  - Injection site mass [Unknown]
  - Insomnia [Unknown]
  - Injection site swelling [Unknown]
